FAERS Safety Report 6604575-3 (Version None)
Quarter: 2010Q1

REPORT INFORMATION
  Report Type: 
  Country: None (occurrence: None)
  Receive Date: 20100226
  Receipt Date: 20091126
  Transmission Date: 20100710
  Serious: No
  Sender: FDA-Public Use
  Company Number: A0833647A

PATIENT
  Sex: Female

DRUGS (1)
  1. LAMICTAL CD [Suspect]
     Indication: EPILEPSY
     Dosage: 125MG PER DAY
     Route: 065

REACTIONS (6)
  - ABNORMAL DREAMS [None]
  - CONDITION AGGRAVATED [None]
  - NIGHTMARE [None]
  - POOR QUALITY SLEEP [None]
  - RAPID EYE MOVEMENTS SLEEP ABNORMAL [None]
  - SOMNOLENCE [None]
